FAERS Safety Report 7698845-8 (Version None)
Quarter: 2011Q3

REPORT INFORMATION
  Report Type: 
  Country: None (occurrence: None)
  Receive Date: 20110819
  Receipt Date: 20080110
  Transmission Date: 20111222
  Serious: No
  Sender: FDA-Public Use
  Company Number: US-PFIZER INC-2008005366

PATIENT

DRUGS (1)
  1. CHANTIX [Suspect]

REACTIONS (1)
  - ABNORMAL DREAMS [None]
